FAERS Safety Report 4713323-3 (Version None)
Quarter: 2005Q3

REPORT INFORMATION
  Report Type: 
  Country: None (occurrence: None)
  Receive Date: 20050713
  Receipt Date: 20050609
  Transmission Date: 20060218
  Serious: Yes (Hospitalization, Disabling, Other)
  Sender: FDA-Public Use
  Company Number: GB-GLAXOSMITHKLINE-B0384030A

PATIENT
  Age: 23 Year
  Sex: Male
  Weight: 56.5 kg

DRUGS (3)
  1. KIVEXA [Suspect]
     Indication: SYSTEMIC ANTIVIRAL TREATMENT
     Route: 048
  2. SEPTRIN [Suspect]
     Indication: INFECTION PROPHYLAXIS
     Route: 048
  3. SUSTIVA [Concomitant]

REACTIONS (11)
  - ABDOMINAL PAIN UPPER [None]
  - CONJUNCTIVITIS [None]
  - DIARRHOEA [None]
  - DIZZINESS [None]
  - HYPOTENSION [None]
  - MALAISE [None]
  - NAUSEA [None]
  - PYREXIA [None]
  - RASH MACULAR [None]
  - SWELLING FACE [None]
  - SYNCOPE [None]
